FAERS Safety Report 12378582 (Version 2)
Quarter: 2016Q2

REPORT INFORMATION
  Report Type: Spontaneous
  Country: TR (occurrence: TR)
  Receive Date: 20160517
  Receipt Date: 20160525
  Transmission Date: 20160815
  Serious: Yes (Congenital Anomaly, Other)
  Sender: FDA-Public Use
  Company Number: TR-ABBVIE-16P-161-1629087-00

PATIENT

DRUGS (2)
  1. VALPROIC ACID. [Suspect]
     Active Substance: VALPROIC ACID
     Indication: MATERNAL EXPOSURE TIMING UNSPECIFIED
     Route: 064
  2. TEGRETOL [Suspect]
     Active Substance: CARBAMAZEPINE
     Indication: MATERNAL EXPOSURE TIMING UNSPECIFIED
     Route: 064

REACTIONS (16)
  - Withdrawal syndrome [Unknown]
  - Atrial septal defect [Unknown]
  - Cyanosis [Unknown]
  - Hyponatraemia [Unknown]
  - Tremor [Unknown]
  - Cryptorchism [Unknown]
  - Hypomagnesaemia [Unknown]
  - Hypotension [Unknown]
  - Selective eating disorder [Unknown]
  - Neonatal disorder [Unknown]
  - Cardiac murmur [Unknown]
  - Respiratory rate increased [Unknown]
  - Apgar score abnormal [Unknown]
  - General physical health deterioration [Unknown]
  - Foetal exposure during pregnancy [Unknown]
  - Respiratory distress [Unknown]
